FAERS Safety Report 11648699 (Version 4)
Quarter: 2016Q2

REPORT INFORMATION
  Report Type: Spontaneous
  Country: US (occurrence: US)
  Receive Date: 20151021
  Receipt Date: 20160628
  Transmission Date: 20160815
  Serious: No
  Sender: FDA-Public Use
  Company Number: PHEH2015US020764

PATIENT
  Age: 79 Year
  Sex: Female

DRUGS (3)
  1. PROMACTA [Suspect]
     Active Substance: ELTROMBOPAG OLAMINE
     Indication: IMMUNE THROMBOCYTOPENIC PURPURA
     Dosage: 12.5 MG, QD
     Route: 048
     Dates: start: 20150504
  2. PROMACTA [Interacting]
     Active Substance: ELTROMBOPAG OLAMINE
     Dosage: 12.5 MG, EVERY THREE DAYS
     Route: 048
     Dates: start: 201505
  3. ACETAMINOPHEN. [Interacting]
     Active Substance: ACETAMINOPHEN
     Indication: PRODUCT USED FOR UNKNOWN INDICATION
     Route: 065

REACTIONS (8)
  - Alopecia [Recovering/Resolving]
  - Pain [Recovering/Resolving]
  - Visual impairment [Recovering/Resolving]
  - Muscle spasms [Recovering/Resolving]
  - Frequent bowel movements [Unknown]
  - Constipation [Recovering/Resolving]
  - Urticaria [Recovering/Resolving]
  - Functional gastrointestinal disorder [Unknown]

NARRATIVE: CASE EVENT DATE: 20150607
